FAERS Safety Report 25669790 (Version 1)
Quarter: 2025Q3

REPORT INFORMATION
  Report Type: Spontaneous
  Country: US (occurrence: None)
  Receive Date: 20250811
  Receipt Date: 20250811
  Transmission Date: 20251020
  Serious: Yes (Hospitalization)
  Sender: FDA-CTU
  Company Number: None

PATIENT
  Sex: Female
  Weight: 102 kg

DRUGS (3)
  1. PAZOPANIB [Suspect]
     Active Substance: PAZOPANIB
  2. Pazopanib 200 mg/day [Concomitant]
     Dates: start: 20240911, end: 20250610
  3. Pazopanib 400 mg/day [Concomitant]
     Dates: start: 20250610

REACTIONS (2)
  - Rash erythematous [None]
  - Pain of skin [None]

NARRATIVE: CASE EVENT DATE: 20250804
